FAERS Safety Report 20459493 (Version 1)
Quarter: 2022Q1

REPORT INFORMATION
  Report Type: Report from Study
  Country: US (occurrence: US)
  Receive Date: 20220211
  Receipt Date: 20220211
  Transmission Date: 20220423
  Serious: Yes (Death, Life-Threatening, Hospitalization)
  Sender: FDA-Public Use
  Company Number: US-JAZZ-2020-US-014357

PATIENT
  Age: 18 Year
  Sex: Male
  Weight: 91.5 kg

DRUGS (9)
  1. ASPARAGINASE ERWINIA CHRYSANTHEMI [Suspect]
     Active Substance: ASPARAGINASE ERWINIA CHRYSANTHEMI
     Indication: Acute lymphocytic leukaemia
     Dosage: 85 MILLIGRAM, 3X WEEKLY PER 2W COURSE
     Route: 030
     Dates: start: 20201023, end: 20201030
  2. DEXAMETHASONE [Suspect]
     Active Substance: DEXAMETHASONE
     Dosage: 12 MILLIGRAM, BID X 7DAYS
     Route: 048
     Dates: start: 20201016, end: 20201023
  3. VINCRISTINE [Concomitant]
     Active Substance: VINCRISTINE
     Dosage: 2 MILLIGRAM, QW
     Route: 042
     Dates: start: 20201016, end: 20201030
  4. DOXORUBICIN [Concomitant]
     Active Substance: DOXORUBICIN
     Dosage: 57 MILLIGRAM, QW
     Route: 042
     Dates: start: 20201016, end: 20201023
  5. PRILOSEC [Concomitant]
     Active Substance: OMEPRAZOLE MAGNESIUM
     Dosage: 20 MILLIGRAM, QD
     Route: 048
     Dates: start: 20201016
  6. OXYCODONE [Concomitant]
     Active Substance: OXYCODONE
     Dosage: 5 MILLIGRAM, PRN
     Route: 048
     Dates: start: 20201016
  7. ZOFRAN [Concomitant]
     Active Substance: ONDANSETRON HYDROCHLORIDE
     Dosage: 8 MILLIGRAM, PRN
     Route: 048
     Dates: start: 20201016
  8. MIRALAX [Concomitant]
     Active Substance: POLYETHYLENE GLYCOL 3350
     Dosage: 17 GRAM, PRN
     Route: 048
     Dates: start: 20201016
  9. ACETAMINOPHEN [Concomitant]
     Active Substance: ACETAMINOPHEN
     Dosage: 650 MILLIGRAM, PRN
     Route: 048
     Dates: start: 20201016

REACTIONS (5)
  - Pancreatitis acute [Recovering/Resolving]
  - Hyperglycaemia [Recovering/Resolving]
  - Pulmonary embolism [Not Recovered/Not Resolved]
  - Sepsis [Not Recovered/Not Resolved]
  - Multiple organ dysfunction syndrome [Fatal]

NARRATIVE: CASE EVENT DATE: 20201030
